FAERS Safety Report 6409620-6 (Version None)
Quarter: 2009Q4

REPORT INFORMATION
  Report Type: 
  Country: None (occurrence: None)
  Receive Date: 20091022
  Receipt Date: 20091009
  Transmission Date: 20100525
  Serious: Yes (Life-Threatening, Hospitalization, Other)
  Sender: FDA-Public Use
  Company Number: BE-PFIZER INC-2009224582

PATIENT
  Age: 52 Year

DRUGS (6)
  1. VARENICLINE TARTRATE [Suspect]
     Indication: SMOKING CESSATION THERAPY
     Dosage: 1 MG, UNK
     Route: 048
     Dates: start: 20090504, end: 20090504
  2. LIPITOR [Concomitant]
  3. SELOZOK [Concomitant]
  4. COVERSYL [Concomitant]
  5. ASAFLOW [Concomitant]
  6. PLAVIX [Concomitant]

REACTIONS (6)
  - BLOOD CREATINE PHOSPHOKINASE INCREASED [None]
  - HYPERVENTILATION [None]
  - METABOLIC ACIDOSIS [None]
  - OVERDOSE [None]
  - RENAL IMPAIRMENT [None]
  - SUICIDE ATTEMPT [None]
